FAERS Safety Report 6924939-8 (Version None)
Quarter: 2010Q3

REPORT INFORMATION
  Report Type: 
  Country: None (occurrence: None)
  Receive Date: 20100816
  Receipt Date: 20100804
  Transmission Date: 20110219
  Serious: Yes (Other)
  Sender: FDA-Public Use
  Company Number: ES-PFIZER INC-2010097739

PATIENT
  Age: 72 Year
  Sex: Female

DRUGS (9)
  1. CARDURA [Suspect]
     Indication: HYPERTENSION
     Dosage: 4 MG, 1X/DAY
     Dates: start: 20090101
  2. XENICAL [Interacting]
     Dosage: UNK
     Dates: start: 20100601
  3. ISCOVER [Concomitant]
     Dosage: UNK
  4. SUTRIL [Concomitant]
     Dosage: 10 MG, UNK
  5. ASPIRIN [Concomitant]
     Dosage: UNK
  6. ATACAND [Concomitant]
     Dosage: UNK
  7. PREVENCOR [Concomitant]
     Dosage: UNK
  8. EUTIROX [Concomitant]
     Dosage: UNK
  9. EZETROL [Concomitant]
     Dosage: UNK

REACTIONS (3)
  - BLOOD PRESSURE INADEQUATELY CONTROLLED [None]
  - DRUG INTERACTION [None]
  - MEDICATION RESIDUE [None]
